FAERS Safety Report 6137212-5 (Version None)
Quarter: 2009Q1

REPORT INFORMATION
  Report Type: 
  Country: None (occurrence: None)
  Receive Date: 20090330
  Receipt Date: 20090323
  Transmission Date: 20090719
  Serious: Yes (Hospitalization, Other)
  Sender: FDA-Public Use
  Company Number: PHHY2008AT00784

PATIENT
  Sex: Female
  Weight: 62 kg

DRUGS (2)
  1. EXELON [Suspect]
     Indication: DEMENTIA ALZHEIMER'S TYPE
     Dosage: 4.6 MG/24 H
     Route: 062
     Dates: start: 20071126, end: 20071223
  2. EXELON [Suspect]
     Indication: MINI MENTAL STATUS EXAMINATION
     Dosage: 9.5 MG/24 H
     Route: 062
     Dates: start: 20071224, end: 20071228

REACTIONS (17)
  - ACTIVATED PARTIAL THROMBOPLASTIN TIME [None]
  - BLOOD ALBUMIN DECREASED [None]
  - BLOOD CALCIUM DECREASED [None]
  - BLOOD CHOLINESTERASE DECREASED [None]
  - BLOOD FIBRINOGEN INCREASED [None]
  - BLOOD LACTATE DEHYDROGENASE INCREASED [None]
  - C-REACTIVE PROTEIN INCREASED [None]
  - DEEP VEIN THROMBOSIS [None]
  - FIBRIN D DIMER INCREASED [None]
  - HAEMOGLOBIN DECREASED [None]
  - MEAN CELL HAEMOGLOBIN DECREASED [None]
  - MEAN CELL VOLUME ABNORMAL [None]
  - METASTASIS [None]
  - MYOGLOBIN BLOOD INCREASED [None]
  - NEOPLASM MALIGNANT [None]
  - PARANEOPLASTIC SYNDROME [None]
  - THROMBOPHLEBITIS [None]
